FAERS Safety Report 10340628 (Version 1)
Quarter: 2014Q3

REPORT INFORMATION
  Report Type: Spontaneous
  Country: US (occurrence: US)
  Receive Date: 20140724
  Receipt Date: 20140724
  Transmission Date: 20150326
  Serious: Yes (Other)
  Sender: FDA-Public Use
  Company Number: US-BAXTER-2014BAX040021

PATIENT
  Age: 15 Year
  Sex: Female

DRUGS (5)
  1. GAMMAGARD LIQUID [Suspect]
     Active Substance: HUMAN IMMUNOGLOBULIN G
     Indication: IMMUNODEFICIENCY CONGENITAL
  2. GAMMAGARD LIQUID [Suspect]
     Active Substance: HUMAN IMMUNOGLOBULIN G
     Indication: OFF LABEL USE
  3. GAMMAGARD LIQUID [Suspect]
     Active Substance: HUMAN IMMUNOGLOBULIN G
     Indication: PYODERMA GANGRENOSUM
     Route: 042
  4. COLCHICINE. [Suspect]
     Active Substance: COLCHICINE
     Indication: IMMUNODEFICIENCY CONGENITAL
  5. COLCHICINE. [Suspect]
     Active Substance: COLCHICINE
     Indication: PYODERMA GANGRENOSUM
     Route: 065

REACTIONS (2)
  - Skin ulcer [Not Recovered/Not Resolved]
  - Condition aggravated [Not Recovered/Not Resolved]
